FAERS Safety Report 14992351 (Version 1)
Quarter: 2018Q2

REPORT INFORMATION
  Report Type: Spontaneous
  Country: DE (occurrence: DE)
  Receive Date: 20180609
  Receipt Date: 20180609
  Transmission Date: 20180711
  Serious: Yes (Hospitalization)
  Sender: FDA-Public Use
  Company Number: DE-TEVA-2018-DE-903108

PATIENT
  Age: 71 Year
  Sex: Male

DRUGS (15)
  1. FUROSEMID [Concomitant]
     Active Substance: FUROSEMIDE
     Dosage: 1-1-0-0
     Route: 065
  2. ROFLUMILAST. [Concomitant]
     Active Substance: ROFLUMILAST
     Dosage: 1-0-0-0
     Route: 065
  3. PRASUGREL. [Concomitant]
     Active Substance: PRASUGREL
     Dosage: 1-0-0-0
     Route: 065
  4. RAMIPRIL. [Concomitant]
     Active Substance: RAMIPRIL
     Dosage: 1-0-0-0
     Route: 065
  5. NITRENDIPIN [Concomitant]
     Active Substance: NITRENDIPINE
     Dosage: 1-0-0-0
     Route: 065
  6. PREDNISOLONE. [Suspect]
     Active Substance: PREDNISOLONE
     Dosage: ACCORDING TO SCHEME
     Route: 065
  7. SALBUTAMOL [Concomitant]
     Active Substance: ALBUTEROL
     Dosage: 3-3-3-0,DROPS
     Route: 055
  8. APSOMOL [Concomitant]
     Active Substance: ALBUTEROL
     Dosage: NEED, METERED DOSE INHALER
     Route: 065
  9. ATROVENT [Concomitant]
     Active Substance: IPRATROPIUM BROMIDE
     Dosage: 20-20-20-0, DROPS
     Route: 055
  10. ACETYLSALICYLSAEURE [Concomitant]
     Active Substance: ASPIRIN
     Dosage: 0-1-0-0
     Route: 065
  11. EPLERENON [Concomitant]
     Active Substance: EPLERENONE
     Dosage: 2-0-0-0
     Route: 065
  12. URAPIDIL [Concomitant]
     Active Substance: URAPIDIL
     Dosage: 1-0-0-1
     Route: 065
  13. TAMSULOSIN [Concomitant]
     Active Substance: TAMSULOSIN
     Dosage: 1-0-0-0
     Route: 065
  14. ATORVASTATIN [Concomitant]
     Active Substance: ATORVASTATIN
     Dosage: 0-0-1-0
     Route: 065
  15. METOPROLOL. [Suspect]
     Active Substance: METOPROLOL
     Dosage: 1-0-1-0
     Route: 065

REACTIONS (2)
  - Erythema [Unknown]
  - Swelling [Unknown]
